FAERS Safety Report 6874071-7 (Version None)
Quarter: 2010Q3

REPORT INFORMATION
  Report Type: 
  Country: None (occurrence: None)
  Receive Date: 20100723
  Receipt Date: 20090415
  Transmission Date: 20110219
  Serious: No
  Sender: FDA-Public Use
  Company Number: US-PFIZER INC-2009202464

PATIENT
  Sex: Female
  Weight: 54.422 kg

DRUGS (2)
  1. CHANTIX [Suspect]
     Indication: SMOKING CESSATION THERAPY
     Dates: start: 20081201
  2. ESTROGEN NOS [Concomitant]
     Dosage: UNK

REACTIONS (3)
  - FATIGUE [None]
  - MALAISE [None]
  - NAUSEA [None]
